FAERS Safety Report 19675236 (Version 1)
Quarter: 2021Q3

REPORT INFORMATION
  Report Type: Report from Study
  Country: FR (occurrence: FR)
  Receive Date: 20210809
  Receipt Date: 20210809
  Transmission Date: 20211014
  Serious: Yes (Death, Hospitalization, Other)
  Sender: FDA-Public Use
  Company Number: FR-TEVA-2021-FR-1923289

PATIENT
  Age: 78 Year
  Sex: Female

DRUGS (5)
  1. TEMERITDUO [Concomitant]
     Active Substance: HYDROCHLOROTHIAZIDE\NEBIVOLOL HYDROCHLORIDE
     Route: 065
     Dates: start: 2011
  2. PACLITAXEL. [Suspect]
     Active Substance: PACLITAXEL
     Indication: ANAL SQUAMOUS CELL CARCINOMA
     Dosage: 80 MG/M2 AT DAYS 1, 8 AND 15, EVERY 4 WEEKS,
     Route: 042
     Dates: start: 20210519
  3. KARDEGIC [Concomitant]
     Active Substance: ASPIRIN DL-LYSINE
     Route: 065
     Dates: start: 2011
  4. CARBOPLATINE [Suspect]
     Active Substance: CARBOPLATIN
     Indication: ANAL SQUAMOUS CELL CARCINOMA
     Dosage: AUC 5, EVERY 4 WEEKS.
     Route: 042
     Dates: start: 20210519
  5. INEXIUM [Concomitant]
     Active Substance: ESOMEPRAZOLE
     Route: 065
     Dates: start: 2011

REACTIONS (5)
  - Pulmonary embolism [Unknown]
  - General physical health deterioration [Not Recovered/Not Resolved]
  - Respiratory distress [Unknown]
  - Deep vein thrombosis [Unknown]
  - Anal squamous cell carcinoma [Fatal]

NARRATIVE: CASE EVENT DATE: 2021
